FAERS Safety Report 11910703 (Version 1)
Quarter: 2016Q1

REPORT INFORMATION
  Report Type: Spontaneous
  Country: US (occurrence: US)
  Receive Date: 20160112
  Receipt Date: 20160112
  Transmission Date: 20160526
  Serious: Yes (Other)
  Sender: FDA-Public Use
  Company Number: US-WATSON-2015-29105

PATIENT
  Age: 60 Year
  Sex: Male

DRUGS (3)
  1. BUPROPION HYDROCHLORIDE (WATSON LABORATORIES) [Suspect]
     Active Substance: BUPROPION HYDROCHLORIDE
     Indication: PRODUCT USED FOR UNKNOWN INDICATION
     Dosage: 300 MG, DAILY
     Route: 048
     Dates: start: 20151203
  2. DICLOFENAC [Concomitant]
     Active Substance: DICLOFENAC
     Indication: ARTHRITIS
     Dosage: UNK, UNKNOWN
     Route: 065
  3. TOPIRAMATE ZYDUS [Suspect]
     Active Substance: TOPIRAMATE
     Indication: DRUG WITHDRAWAL SYNDROME
     Dosage: 25 MG, Q6H
     Route: 048
     Dates: start: 20151203

REACTIONS (10)
  - Immobile [Not Recovered/Not Resolved]
  - Tinnitus [Not Recovered/Not Resolved]
  - Chills [Not Recovered/Not Resolved]
  - Feeling jittery [Not Recovered/Not Resolved]
  - Dizziness [Not Recovered/Not Resolved]
  - Insomnia [Not Recovered/Not Resolved]
  - Hot flush [Not Recovered/Not Resolved]
  - Feeling cold [Not Recovered/Not Resolved]
  - Abdominal discomfort [Not Recovered/Not Resolved]
  - Dry mouth [Not Recovered/Not Resolved]

NARRATIVE: CASE EVENT DATE: 20151203
